FAERS Safety Report 10908117 (Version 2)
Quarter: 2015Q3

REPORT INFORMATION
  Report Type: Spontaneous
  Country: US (occurrence: US)
  Receive Date: 20150312
  Receipt Date: 20150924
  Transmission Date: 20151125
  Serious: No
  Sender: FDA-Public Use
  Company Number: US-INCYTE CORPORATION-2015IN000421

PATIENT
  Sex: Female
  Weight: 83.9 kg

DRUGS (1)
  1. JAKAFI [Suspect]
     Active Substance: RUXOLITINIB
     Indication: MYELOPROLIFERATIVE DISORDER
     Dosage: 20 MG, BID
     Route: 048
     Dates: start: 20140521

REACTIONS (4)
  - Asthenia [Unknown]
  - Fatigue [Unknown]
  - Hepatomegaly [Unknown]
  - Dyspnoea [Unknown]
